FAERS Safety Report 15243477 (Version 1)
Quarter: 2018Q3

REPORT INFORMATION
  Report Type: Spontaneous
  Country: US (occurrence: US)
  Receive Date: 20180806
  Receipt Date: 20180806
  Transmission Date: 20181010
  Serious: No
  Sender: FDA-Public Use
  Company Number: US-BAYER-2018-142286

PATIENT
  Age: 62 Year
  Sex: Male
  Weight: 112 kg

DRUGS (5)
  1. TRAMADOL. [Concomitant]
     Active Substance: TRAMADOL
     Dosage: UNK
  2. ASPIRIN PLUS C [Concomitant]
     Active Substance: ASCORBIC ACID\ASPIRIN
     Dosage: UNK
  3. ALEVE PM [Suspect]
     Active Substance: DIPHENHYDRAMINE HYDROCHLORIDE\NAPROXEN SODIUM
     Dosage: TABLET/CAPLET/GELCAP
     Route: 048
  4. FUROSEMIDE. [Concomitant]
     Active Substance: FUROSEMIDE
     Dosage: UNK
  5. ALEVE [Suspect]
     Active Substance: NAPROXEN SODIUM
     Indication: PAIN
     Dosage: 1 DF, 3?4 TIMES WEEK
     Route: 048

REACTIONS (5)
  - Insomnia [None]
  - Underdose [None]
  - Nausea [None]
  - Abdominal discomfort [None]
  - Product use issue [None]
